FAERS Safety Report 5025009-9 (Version None)
Quarter: 2006Q2

REPORT INFORMATION
  Report Type: 
  Country: None (occurrence: None)
  Receive Date: 20060607
  Receipt Date: 20060529
  Transmission Date: 20061013
  Serious: Yes (Death, Hospitalization)
  Sender: FDA-Public Use
  Company Number: RS006044-F

PATIENT
  Age: 72 Year
  Sex: Male

DRUGS (1)
  1. RABEPRAZOLE SODIUM [Suspect]
     Dosage: 10 MG, 1 IN 1 D, ORAL
     Route: 048

REACTIONS (5)
  - CHILLS [None]
  - EPISTAXIS [None]
  - FAECALOMA [None]
  - MOUTH HAEMORRHAGE [None]
  - SKIN HAEMORRHAGE [None]
